FAERS Safety Report 15430639 (Version 1)
Quarter: 2018Q4

REPORT INFORMATION
  Report Type: Spontaneous
  Country: US (occurrence: US)
  Receive Date: 20180926
  Receipt Date: 20180926
  Transmission Date: 20190204
  Serious: No
  Sender: FDA-Public Use
  Company Number: US-ASSERTIO THERAPEUTICS, INC.-US-2018DEP000337

PATIENT

DRUGS (2)
  1. GRALISE [Suspect]
     Active Substance: GABAPENTIN
     Indication: NEURALGIA
     Dosage: 600 MG, QD
     Route: 048
     Dates: start: 2014
  2. GRALISE [Suspect]
     Active Substance: GABAPENTIN
     Dosage: 300 MG, QD, TITRATED TO 900 MG, QD
     Route: 048
     Dates: start: 2014, end: 2014

REACTIONS (8)
  - Osteoporosis [Not Recovered/Not Resolved]
  - Drug titration error [Unknown]
  - Neck pain [Not Recovered/Not Resolved]
  - Product use in unapproved indication [Unknown]
  - Intentional product use issue [Unknown]
  - Back pain [Not Recovered/Not Resolved]
  - Vision blurred [Not Recovered/Not Resolved]
  - Arthralgia [Not Recovered/Not Resolved]

NARRATIVE: CASE EVENT DATE: 2014
